FAERS Safety Report 11796602 (Version 2)
Quarter: 2016Q2

REPORT INFORMATION
  Report Type: Spontaneous
  Country: US (occurrence: US)
  Receive Date: 20151203
  Receipt Date: 20160520
  Transmission Date: 20160815
  Serious: Yes (Other)
  Sender: FDA-Public Use
  Company Number: US-BAYER-2015-480829

PATIENT
  Age: 25 Year
  Sex: Female
  Weight: 72.56 kg

DRUGS (7)
  1. DARVOCET [Concomitant]
     Active Substance: ACETAMINOPHEN\PROPOXYPHENE HYDROCHLORIDE
  2. PRISTIQ EXTENDED-RELEASE [Concomitant]
     Active Substance: DESVENLAFAXINE SUCCINATE
     Indication: DEPRESSION
  3. SEROQUEL [Concomitant]
     Active Substance: QUETIAPINE FUMARATE
     Indication: DEPRESSION
     Dosage: UNK
     Dates: start: 2011, end: 2013
  4. MIRENA [Suspect]
     Active Substance: LEVONORGESTREL
     Dosage: 20 MCG/24HR, CONT
     Route: 015
     Dates: start: 20081119
  5. SEROQUEL [Concomitant]
     Active Substance: QUETIAPINE FUMARATE
     Indication: BIPOLAR DISORDER
     Dosage: UNK
     Dates: start: 2005, end: 2007
  6. PAXIL [Concomitant]
     Active Substance: PAROXETINE HYDROCHLORIDE
  7. LORTAB [Concomitant]
     Active Substance: ACETAMINOPHEN\HYDROCODONE BITARTRATE

REACTIONS (12)
  - Genital haemorrhage [Not Recovered/Not Resolved]
  - Pelvic inflammatory disease [Not Recovered/Not Resolved]
  - Pelvic pain [Not Recovered/Not Resolved]
  - Uterine perforation [Not Recovered/Not Resolved]
  - Painful defaecation [Not Recovered/Not Resolved]
  - Device issue [Not Recovered/Not Resolved]
  - Pyrexia [Not Recovered/Not Resolved]
  - Hormone level abnormal [None]
  - Emotional distress [None]
  - Dysuria [Not Recovered/Not Resolved]
  - Dyspareunia [Not Recovered/Not Resolved]
  - Scar [Not Recovered/Not Resolved]

NARRATIVE: CASE EVENT DATE: 20090813
